FAERS Safety Report 10482895 (Version 2)
Quarter: 2014Q3

REPORT INFORMATION
  Report Type: Report from Study
  Country: MX (occurrence: MX)
  Receive Date: 20140929
  Receipt Date: 20140929
  Transmission Date: 20150326
  Serious: Yes (Other)
  Sender: FDA-Public Use
  Company Number: PHHY2009MX27316

PATIENT
  Age: 62 Year
  Sex: Female

DRUGS (2)
  1. ACLASTA [Suspect]
     Active Substance: ZOLEDRONIC ACID
     Dosage: UNK
     Route: 042
     Dates: start: 20080707
  2. ACLASTA [Suspect]
     Active Substance: ZOLEDRONIC ACID
     Indication: OSTEOPOROSIS
     Dosage: 1 DF, PER YEAR
     Route: 042
     Dates: start: 20080707

REACTIONS (4)
  - Syncope [Recovered/Resolved]
  - Bone disorder [Unknown]
  - Pain in extremity [Not Recovered/Not Resolved]
  - Cardiac disorder [Recovered/Resolved]

NARRATIVE: CASE EVENT DATE: 200906
